FAERS Safety Report 10466375 (Version 1)
Quarter: 2014Q3

REPORT INFORMATION
  Report Type: Spontaneous
  Country: US (occurrence: None)
  Receive Date: 20140919
  Receipt Date: 20140919
  Transmission Date: 20150326
  Serious: No
  Sender: FDA-Public Use
  Company Number: None

PATIENT
  Age: 5 Year
  Sex: Female
  Weight: 21.32 kg

DRUGS (1)
  1. POLYETHYLENE GLYCOL [Suspect]
     Active Substance: POLYETHYLENE GLYCOLS
     Indication: CONSTIPATION
     Dosage: 1 CAPFUL ONCE DAILY TAKEN BY MOUTH
     Route: 048

REACTIONS (3)
  - Aggression [None]
  - Abnormal behaviour [None]
  - Intentional self-injury [None]

NARRATIVE: CASE EVENT DATE: 20140701
